FAERS Safety Report 8242494-X (Version None)
Quarter: 2012Q1

REPORT INFORMATION
  Report Type: 
  Country: None (occurrence: None)
  Receive Date: 20120329
  Receipt Date: 20120322
  Transmission Date: 20120608
  Serious: Yes (Hospitalization, Other)
  Sender: FDA-Public Use
  Company Number: US-BAYER-201032236NA

PATIENT
  Age: 27 Year
  Sex: Female
  Weight: 75 kg

DRUGS (11)
  1. ZOFRAN [Concomitant]
  2. VICODIN [Concomitant]
  3. DILAUDID [Concomitant]
  4. ZOLOFT [Concomitant]
     Dosage: UNK
  5. SERTRALINE HYDROCHLORIDE [Concomitant]
     Indication: DEPRESSION
     Dosage: UNK
     Dates: start: 20080101, end: 20090101
  6. NSAID'S [Concomitant]
     Indication: PAIN
     Dosage: UNK
     Dates: start: 20090427
  7. LEVAQUIN [Concomitant]
     Indication: BRONCHITIS
     Dosage: UNK
     Dates: start: 20090429
  8. YAZ [Suspect]
     Indication: CONTRACEPTION
     Dosage: UNK
     Dates: start: 20090201, end: 20090401
  9. AZITHROMYCIN [Concomitant]
  10. NARCOTICS [Concomitant]
     Indication: PAIN
     Dosage: UNK
     Dates: start: 20090427
  11. OXYCONTIN [Concomitant]

REACTIONS (3)
  - PAIN [None]
  - DEEP VEIN THROMBOSIS [None]
  - INJURY [None]
